FAERS Safety Report 7235883-3 (Version None)
Quarter: 2011Q1

REPORT INFORMATION
  Report Type: 
  Country: None (occurrence: None)
  Receive Date: 20110120
  Receipt Date: 20110112
  Transmission Date: 20110831
  Serious: Yes (Hospitalization)
  Sender: FDA-Public Use
  Company Number: JP-ROCHE-753772

PATIENT
  Age: 65 Year
  Sex: Male

DRUGS (5)
  1. AVASTIN [Suspect]
     Indication: LARGE INTESTINE CARCINOMA
     Route: 041
  2. LEVOFOLINATE [Suspect]
     Indication: LARGE INTESTINE CARCINOMA
     Dosage: DOSAGE IS UNCERTAIN.
     Route: 041
  3. ELPLAT [Suspect]
     Indication: LARGE INTESTINE CARCINOMA
     Dosage: DOSAGE IS UNCERTAIN.
     Route: 041
  4. FLUOROURACIL [Suspect]
     Indication: LARGE INTESTINE CARCINOMA
     Dosage: ROUTE: INTRAVENOUS BOLUS, DOSAGE IS UNCERTAIN.
     Route: 041
  5. FLUOROURACIL [Suspect]
     Dosage: ROUTE: INTRAVENOUS DRIP, DOSAGE IS UNCERTAIN.
     Route: 041

REACTIONS (2)
  - INTESTINAL STENOSIS [None]
  - SMALL INTESTINAL PERFORATION [None]
